FAERS Safety Report 12432420 (Version 1)
Quarter: 2016Q2

REPORT INFORMATION
  Report Type: Spontaneous
  Country: US (occurrence: None)
  Receive Date: 20160602
  Receipt Date: 20160602
  Transmission Date: 20160815
  Serious: Yes (Disabling, Other)
  Sender: FDA-Public Use
  Company Number: None

PATIENT
  Age: 66 Year
  Sex: Female
  Weight: 68.04 kg

DRUGS (11)
  1. HYDROCHLOROTHIAZIDE. [Concomitant]
     Active Substance: HYDROCHLOROTHIAZIDE
  2. TRIAMTERENE. [Concomitant]
     Active Substance: TRIAMTERENE
  3. SIMVASTATIN. [Suspect]
     Active Substance: SIMVASTATIN
     Indication: BLOOD CHOLESTEROL INCREASED
     Dosage: 10MG, 1 TABLET DAILY, AT BEDTIME, MOUTH
     Route: 048
     Dates: start: 20160301, end: 20160521
  4. GLIPIZIDE. [Concomitant]
     Active Substance: GLIPIZIDE
  5. GLUCOPHAGE [Concomitant]
     Active Substance: METFORMIN HYDROCHLORIDE
  6. PRINIVIL [Concomitant]
     Active Substance: LISINOPRIL
  7. TRIAMTERENE. [Concomitant]
     Active Substance: TRIAMTERENE
  8. GLIPIZIDE. [Concomitant]
     Active Substance: GLIPIZIDE
  9. GLUCOPHAGE [Concomitant]
     Active Substance: METFORMIN HYDROCHLORIDE
  10. PRINIVIL [Concomitant]
     Active Substance: LISINOPRIL
  11. ASPIRIN. [Concomitant]
     Active Substance: ASPIRIN

REACTIONS (4)
  - Myalgia [None]
  - Confusional state [None]
  - Asthenia [None]
  - Memory impairment [None]
